FAERS Safety Report 4754471-1 (Version None)
Quarter: 2005Q3

REPORT INFORMATION
  Report Type: 
  Country: None (occurrence: None)
  Receive Date: 20050829
  Receipt Date: 20050603
  Transmission Date: 20060218
  Serious: No
  Sender: FDA-Public Use
  Company Number: US-GLAXOSMITHKLINE-A0561143A

PATIENT
  Sex: Female

DRUGS (3)
  1. ACYCLOVIR [Suspect]
     Dosage: 800MG TWICE PER DAY
     Route: 048
     Dates: start: 20040901, end: 20040901
  2. VALACYCLOVIR HCL [Suspect]
     Dosage: 500MG PER DAY
     Route: 048
     Dates: start: 19950101, end: 19960101
  3. NO CONCURRENT MEDICATION [Concomitant]

REACTIONS (6)
  - DRY MOUTH [None]
  - DYSPNOEA [None]
  - FEELING ABNORMAL [None]
  - HEADACHE [None]
  - MUSCLE STRAIN [None]
  - VULVOVAGINAL DISCOMFORT [None]
